FAERS Safety Report 20333653 (Version 1)
Quarter: 2022Q1

REPORT INFORMATION
  Report Type: Report from Study
  Country: US (occurrence: US)
  Receive Date: 20220113
  Receipt Date: 20220113
  Transmission Date: 20220424
  Serious: Yes (Death, Other)
  Sender: FDA-Public Use
  Company Number: US-SHIRE-US201735349

PATIENT
  Age: 62 Year
  Sex: Male

DRUGS (8)
  1. ICATIBANT [Suspect]
     Active Substance: ICATIBANT ACETATE
     Indication: Immunodeficiency common variable
     Dosage: 30 MILLIGRAM, AS NEEDED
     Route: 058
     Dates: start: 20151113
  2. ICATIBANT [Suspect]
     Active Substance: ICATIBANT ACETATE
     Indication: Immunodeficiency common variable
     Dosage: 30 MILLIGRAM, AS NEEDED
     Route: 058
     Dates: start: 20151113
  3. ICATIBANT [Suspect]
     Active Substance: ICATIBANT ACETATE
     Indication: Immune system disorder
     Dosage: 30 MILLIGRAM, QD
     Route: 058
     Dates: start: 20170616
  4. ICATIBANT [Suspect]
     Active Substance: ICATIBANT ACETATE
     Indication: Immune system disorder
     Dosage: 30 MILLIGRAM, QD
     Route: 058
     Dates: start: 20170616
  5. ICATIBANT [Suspect]
     Active Substance: ICATIBANT ACETATE
     Indication: Illness
  6. ICATIBANT [Suspect]
     Active Substance: ICATIBANT ACETATE
     Indication: Illness
  7. ICATIBANT [Suspect]
     Active Substance: ICATIBANT ACETATE
     Indication: Psoriatic arthropathy
  8. ICATIBANT [Suspect]
     Active Substance: ICATIBANT ACETATE
     Indication: Psoriatic arthropathy

REACTIONS (2)
  - Death [Fatal]
  - Cataract [Unknown]

NARRATIVE: CASE EVENT DATE: 20171221
